FAERS Safety Report 15541597 (Version 1)
Quarter: 2018Q4

REPORT INFORMATION
  Report Type: Spontaneous
  Country: AU (occurrence: AU)
  Receive Date: 20181023
  Receipt Date: 20181023
  Transmission Date: 20190205
  Serious: Yes (Death, Other)
  Sender: FDA-Public Use
  Company Number: AU-LANNETT COMPANY, INC.-AU-2018LAN001234

PATIENT

DRUGS (2)
  1. DIPHENOXYLATE HCL; ATROPINE SULFATE [Suspect]
     Active Substance: ATROPINE SULFATE\DIPHENOXYLATE HYDROCHLORIDE
     Indication: SALIVARY HYPERSECRETION
     Dosage: TWO DROPS PRESCRIBED
     Route: 060
  2. DIPHENOXYLATE HCL; ATROPINE SULFATE [Suspect]
     Active Substance: ATROPINE SULFATE\DIPHENOXYLATE HYDROCHLORIDE
     Indication: OFF LABEL USE

REACTIONS (5)
  - Overdose [Fatal]
  - Incorrect route of product administration [None]
  - Accidental exposure to product [Fatal]
  - Off label use [None]
  - Toxicity to various agents [Fatal]
